FAERS Safety Report 9776186 (Version 1)
Quarter: 2013Q4

REPORT INFORMATION
  Report Type: Spontaneous
  Country: IN (occurrence: None)
  Receive Date: 20131218
  Receipt Date: 20131218
  Transmission Date: 20140711
  Serious: Yes (Congenital Anomaly)
  Sender: FDA-Public Use
  Company Number: 2013/218

PATIENT
  Age: 4 Year
  Sex: Male
  Weight: 14 kg

DRUGS (1)
  1. VALPROIC ACID [Suspect]

REACTIONS (10)
  - Dysmorphism [None]
  - Hypotelorism of orbit [None]
  - Lip injury [None]
  - Developmental delay [None]
  - High arched palate [None]
  - Maternal drugs affecting foetus [None]
  - Microstomia [None]
  - Foetal anticonvulsant syndrome [None]
  - Anisometropia [None]
  - Craniosynostosis [None]
